FAERS Safety Report 5329863-2 (Version None)
Quarter: 2007Q2

REPORT INFORMATION
  Report Type: 
  Country: None (occurrence: None)
  Receive Date: 20070521
  Receipt Date: 20070510
  Transmission Date: 20071010
  Serious: Yes (Other)
  Sender: FDA-Public Use
  Company Number: PHHO2007DE08053

PATIENT
  Age: 71 Year
  Sex: Female

DRUGS (8)
  1. ZOLEDRONATE [Suspect]
     Indication: METASTASES TO BONE
     Dosage: 4 MG, ONCE A MONTH
     Route: 042
     Dates: start: 20060908, end: 20070404
  2. KEVATRIL [Concomitant]
  3. CLINDAMYCIN [Suspect]
  4. TAVEGIL [Concomitant]
  5. PACLITAXEL [Concomitant]
     Indication: BREAST CANCER
  6. DEXAMETHASONE 0.5MG TAB [Concomitant]
  7. CALCIUM CHLORIDE [Concomitant]
     Indication: METASTASES TO BONE
     Dosage: 500 MG, QD
     Route: 048
     Dates: start: 20060908, end: 20070404
  8. VITAMIN D [Concomitant]
     Indication: METASTASES TO BONE
     Dosage: 400-500 IU
     Route: 048
     Dates: start: 20060908, end: 20070404

REACTIONS (4)
  - GASTROINTESTINAL PAIN [None]
  - NAUSEA [None]
  - OSTEONECROSIS [None]
  - SURGERY [None]
